FAERS Safety Report 9070959 (Version 1)
Quarter: 2013Q1

REPORT INFORMATION
  Report Type: Report from Study
  Country: JP (occurrence: JP)
  Receive Date: 20130129
  Receipt Date: 20130129
  Transmission Date: 20140127
  Serious: Yes (Other)
  Sender: FDA-Public Use
  Company Number: JP-GLAXOSMITHKLINE-B0859947A

PATIENT
  Age: 39 None
  Sex: Male
  Weight: 55 kg

DRUGS (12)
  1. LAMICTAL [Suspect]
     Indication: SIMPLE PARTIAL SEIZURES
     Dosage: 25MG PER DAY
     Route: 048
     Dates: start: 20090625, end: 20090720
  2. LAMICTAL [Suspect]
     Indication: SIMPLE PARTIAL SEIZURES
     Dosage: 50MG PER DAY
     Route: 048
     Dates: start: 20090721, end: 20090923
  3. LAMICTAL [Suspect]
     Indication: SIMPLE PARTIAL SEIZURES
     Dosage: 25MG PER DAY
     Route: 048
     Dates: start: 20090924, end: 20091210
  4. PHENYTOIN [Concomitant]
     Indication: SIMPLE PARTIAL SEIZURES
     Route: 048
  5. PHENOBARBITAL [Concomitant]
     Indication: SIMPLE PARTIAL SEIZURES
     Route: 048
  6. SEROQUEL [Concomitant]
     Route: 048
  7. BENOZIL [Concomitant]
     Route: 048
  8. DORAL [Concomitant]
     Route: 048
  9. ERIMIN [Concomitant]
     Route: 048
  10. AMOBAN [Concomitant]
     Route: 048
  11. BENZALIN [Concomitant]
     Route: 048
  12. HALCION [Concomitant]
     Route: 048

REACTIONS (2)
  - Rib fracture [Recovered/Resolved]
  - Headache [Recovering/Resolving]
